FAERS Safety Report 23248280 (Version 1)
Quarter: 2023Q4

REPORT INFORMATION
  Report Type: Spontaneous
  Country: FR (occurrence: None)
  Receive Date: 20231130
  Receipt Date: 20231130
  Transmission Date: 20240109
  Serious: Yes (Other)
  Sender: FDA-Public Use
  Company Number: FR-ROCHE-3462900

PATIENT
  Age: 59 Year
  Sex: Female

DRUGS (6)
  1. AVASTIN [Suspect]
     Active Substance: BEVACIZUMAB
     Indication: Non-small cell lung cancer
     Dosage: ON 24/OCT/2023, SHE RECEIVED LAST DOSE OF AVASTIN WHICH WAS 375 MG
     Route: 065
     Dates: start: 2013
  2. ALIMTA [Concomitant]
     Active Substance: PEMETREXED DISODIUM
     Dates: start: 2013
  3. CISPLATIN [Concomitant]
     Active Substance: CISPLATIN
     Dates: start: 2013
  4. TARCEVA [Concomitant]
     Active Substance: ERLOTINIB HYDROCHLORIDE
     Dates: start: 201304
  5. TAGRISSO [Concomitant]
     Active Substance: OSIMERTINIB
     Dates: end: 2023
  6. PEMETREXED [Concomitant]
     Active Substance: PEMETREXED
     Dosage: ON 24/OCT/2023, RECEIVED LAST DOSE OF 750 MG

REACTIONS (2)
  - Treatment failure [Unknown]
  - Metastasis [Unknown]
